FAERS Safety Report 7619775-3 (Version None)
Quarter: 2011Q3

REPORT INFORMATION
  Report Type: 
  Country: None (occurrence: None)
  Receive Date: 20110719
  Receipt Date: 20110708
  Transmission Date: 20111222
  Serious: Yes (Other)
  Sender: FDA-Public Use
  Company Number: US-US-EMD SERONO, INC.-7070005

PATIENT
  Sex: Male
  Weight: 86 kg

DRUGS (2)
  1. TIZANIDINE HCL [Concomitant]
     Indication: FEELING OF RELAXATION
  2. REBIF [Suspect]
     Indication: MULTIPLE SCLEROSIS
     Route: 058
     Dates: start: 20100910

REACTIONS (5)
  - EATING DISORDER [None]
  - INJECTION SITE PAIN [None]
  - RASH [None]
  - TONSILLAR NEOPLASM [None]
  - HYPERSOMNIA [None]
